FAERS Safety Report 14356983 (Version 2)
Quarter: 2018Q1

REPORT INFORMATION
  Report Type: Spontaneous
  Country: US (occurrence: US)
  Receive Date: 20180105
  Receipt Date: 20180119
  Transmission Date: 20180509
  Serious: Yes (Other)
  Sender: FDA-Public Use
  Company Number: US-TEVA-2017-US-842471

PATIENT
  Sex: Male

DRUGS (1)
  1. ALENDRONATE SODIUM. [Suspect]
     Active Substance: ALENDRONATE SODIUM
     Indication: BONE DENSITY ABNORMAL
     Dosage: DOSE STRENGTH: 70
     Route: 065

REACTIONS (1)
  - Ankle operation [Unknown]

NARRATIVE: CASE EVENT DATE: 20171210
